FAERS Safety Report 11042741 (Version 2)
Quarter: 2015Q2

REPORT INFORMATION
  Report Type: Spontaneous
  Country: CZ (occurrence: CZ)
  Receive Date: 20150416
  Receipt Date: 20150503
  Transmission Date: 20150821
  Serious: Yes (Other)
  Sender: FDA-Public Use
  Company Number: CZ-AMGEN-CZESP2015036261

PATIENT
  Age: 38 Year
  Sex: Male

DRUGS (3)
  1. ENBREL [Suspect]
     Active Substance: ETANERCEPT
     Indication: PSORIATIC ARTHROPATHY
     Dosage: 25 UNK, 2X/WEEK
     Route: 058
     Dates: start: 20150105, end: 20150401
  2. ESSENTIALE FORTE [Concomitant]
     Indication: HEPATIC STEATOSIS
     Dosage: 3 DF, 3X/DAY
     Route: 048
  3. LAGOSA [Concomitant]
     Indication: HEPATIC STEATOSIS
     Dosage: 1 DF, 3X/DAY
     Route: 048

REACTIONS (1)
  - Liver function test abnormal [Unknown]

NARRATIVE: CASE EVENT DATE: 20150401
